FAERS Safety Report 20328562 (Version 1)
Quarter: 2022Q1

REPORT INFORMATION
  Report Type: Spontaneous
  Country: US (occurrence: US)
  Receive Date: 20220112
  Receipt Date: 20220112
  Transmission Date: 20220423
  Serious: Yes (Other)
  Sender: FDA-Public Use
  Company Number: US-PFIZER INC-202200001028

PATIENT
  Age: 72 Year
  Sex: Female

DRUGS (3)
  1. ADENOSINE PHOSPHATE [Suspect]
     Active Substance: ADENOSINE PHOSPHATE
     Indication: Cardiac stress test
     Dosage: 31 MG,INFUSION
     Route: 042
  2. ALBUTEROL SULFATE [Suspect]
     Active Substance: ALBUTEROL SULFATE
     Indication: Wheezing
     Dosage: UNK
     Route: 048
  3. SESTAMIBI KIT PARA LA PREPARACION DE INYECCION DE TECNECIO TC 99M [Concomitant]
     Indication: Scan myocardial perfusion
     Dosage: UNK

REACTIONS (1)
  - Stress cardiomyopathy [Recovered/Resolved]
